FAERS Safety Report 7509074-2 (Version None)
Quarter: 2011Q2

REPORT INFORMATION
  Report Type: 
  Country: None (occurrence: None)
  Receive Date: 20110527
  Receipt Date: 20110513
  Transmission Date: 20111010
  Serious: Yes (Other)
  Sender: FDA-Public Use
  Company Number: CA-JNJFOC-20110507312

PATIENT
  Age: 50 Year
  Sex: Male
  Weight: 105.4 kg

DRUGS (5)
  1. PREDNISONE [Suspect]
     Indication: PRODUCT USED FOR UNKNOWN INDICATION
  2. ANDROGEL [Concomitant]
  3. REMICADE [Suspect]
     Dosage: 4TH INFUSION
     Route: 042
     Dates: start: 20110316
  4. IMURAN [Concomitant]
     Route: 048
  5. REMICADE [Suspect]
     Indication: COLITIS ULCERATIVE
     Route: 042
     Dates: start: 20101209

REACTIONS (2)
  - BLOOD GLUCOSE INCREASED [None]
  - RENAL IMPAIRMENT [None]
